FAERS Safety Report 19324863 (Version 1)
Quarter: 2021Q2

REPORT INFORMATION
  Report Type: Spontaneous
  Country: ES (occurrence: ES)
  Receive Date: 20210528
  Receipt Date: 20210528
  Transmission Date: 20210717
  Serious: Yes (Hospitalization)
  Sender: FDA-Public Use
  Company Number: ES-TEVA-2021-ES-1915277

PATIENT
  Age: 90 Year
  Sex: Female

DRUGS (4)
  1. DEPRAX 100 MG COMPRIMIDOS RECUBIERTOS CON PELICULA EFG , 30 COMPRIMIDO [Interacting]
     Active Substance: TRAZODONE HYDROCHLORIDE
     Indication: COGNITIVE DISORDER
     Dosage: 100MILLIGRAM
     Route: 048
     Dates: start: 20210412, end: 20210412
  2. DISTRANEURINE 192 MG CAPSULAS BLANDAS , 30 CAPSULAS [Interacting]
     Active Substance: CLOMETHIAZOLE
     Indication: COGNITIVE DISORDER
     Dosage: 384MILLIGRAM
     Route: 048
     Dates: start: 20210412, end: 20210412
  3. QUETIAPINA (1136A) [Suspect]
     Active Substance: QUETIAPINE
     Indication: COGNITIVE DISORDER
     Dosage: THERAPY START DATE :NOT ASKED:UNIT DOSE:25MILLIGRAM
     Route: 048
  4. SERTRALINA (2537A) [Concomitant]
     Active Substance: SERTRALINE HYDROCHLORIDE
     Indication: COGNITIVE DISORDER
     Dosage: 25MILLIGRAM
     Route: 048

REACTIONS (3)
  - Depressed level of consciousness [Recovered/Resolved]
  - Drug interaction [Unknown]
  - Incorrect dose administered [Recovered/Resolved]

NARRATIVE: CASE EVENT DATE: 20210412
